FAERS Safety Report 22263202 (Version 4)
Quarter: 2023Q2

REPORT INFORMATION
  Report Type: Report from Study
  Country: US (occurrence: US)
  Receive Date: 20230428
  Receipt Date: 20230602
  Transmission Date: 20230721
  Serious: Yes (Life-Threatening, Hospitalization, Other)
  Sender: FDA-Public Use
  Company Number: US-JNJFOC-20230459253

PATIENT
  Age: 64 Year
  Sex: Female

DRUGS (21)
  1. SPRAVATO [Suspect]
     Active Substance: ESKETAMINE
     Indication: Depression
     Dosage: ^56 MG, 1 TOTAL DOSE^
     Dates: start: 20230203, end: 20230203
  2. SPRAVATO [Suspect]
     Active Substance: ESKETAMINE
     Dosage: ^84 MG, 6 TOTAL DOSES^
     Dates: start: 20230206, end: 20230303
  3. SPRAVATO [Suspect]
     Active Substance: ESKETAMINE
     Dosage: ^84 MG, 1 TOTAL DOSE^
     Dates: start: 20230308, end: 20230308
  4. INSULIN NOS [Suspect]
     Active Substance: INSULIN NOS
     Indication: Suicide attempt
     Route: 065
  5. ALBUTEROL [Concomitant]
     Active Substance: ALBUTEROL
     Route: 065
  6. AMITIZA [Concomitant]
     Active Substance: LUBIPROSTONE
     Route: 065
  7. ASPERCREME PAIN RELIEVING [Concomitant]
     Active Substance: TROLAMINE SALICYLATE
     Route: 065
  8. DIAZEPAM [Concomitant]
     Active Substance: DIAZEPAM
     Route: 065
  9. DICLOFENAC POTASSIUM [Concomitant]
     Active Substance: DICLOFENAC POTASSIUM
     Route: 065
  10. HYDROCORTISONE [Concomitant]
     Active Substance: HYDROCORTISONE
     Route: 065
  11. LACOSAMIDE [Concomitant]
     Active Substance: LACOSAMIDE
     Route: 065
  12. LISDEXAMFETAMINE [Concomitant]
     Active Substance: LISDEXAMFETAMINE
     Route: 065
  13. LYRICA [Concomitant]
     Active Substance: PREGABALIN
     Route: 065
  14. MYRBETRIQ [Concomitant]
     Active Substance: MIRABEGRON
     Route: 065
  15. ACETAMINOPHEN\OXYCODONE HYDROCHLORIDE [Concomitant]
     Active Substance: ACETAMINOPHEN\OXYCODONE HYDROCHLORIDE
  16. PANTOPRAZOLE [Concomitant]
     Active Substance: PANTOPRAZOLE
     Route: 065
  17. PRAZOSIN [Concomitant]
     Active Substance: PRAZOSIN
     Route: 065
  18. PRISTIQ EXTENDED-RELEASE [Concomitant]
     Active Substance: DESVENLAFAXINE SUCCINATE
     Route: 065
  19. SPIRONOLACTONE [Concomitant]
     Active Substance: SPIRONOLACTONE
     Route: 065
  20. TIZANIDINE [Concomitant]
     Active Substance: TIZANIDINE
     Route: 065
  21. TRAZODONE [Concomitant]
     Active Substance: TRAZODONE HYDROCHLORIDE
     Route: 065

REACTIONS (3)
  - Suicide attempt [Recovered/Resolved]
  - Intentional overdose [Unknown]
  - Dissociation [Recovered/Resolved]

NARRATIVE: CASE EVENT DATE: 20230308
